FAERS Safety Report 13446862 (Version 15)
Quarter: 2017Q4

REPORT INFORMATION
  Report Type: Spontaneous
  Country: US (occurrence: US)
  Receive Date: 20170417
  Receipt Date: 20171123
  Transmission Date: 20180320
  Serious: No
  Sender: FDA-Public Use
  Company Number: US-PFIZER INC-2017156913

PATIENT
  Age: 73 Year
  Sex: Female
  Weight: 58.51 kg

DRUGS (9)
  1. FERROUS SULFATE. [Concomitant]
     Active Substance: FERROUS SULFATE
     Dosage: UNK
  2. SUTENT [Suspect]
     Active Substance: SUNITINIB MALATE
     Dosage: 37.5 MG, CYCLIC (DAILY FOR 2 WEEKS ON AND 2 WEEKS OFF)
     Dates: start: 20170823
  3. SUTENT [Suspect]
     Active Substance: SUNITINIB MALATE
     Indication: METASTATIC RENAL CELL CARCINOMA
     Dosage: 37.5 MG, DAILY
     Route: 048
     Dates: start: 20170329
  4. SUTENT [Suspect]
     Active Substance: SUNITINIB MALATE
     Dosage: 50 MG, CYCLIC (DAILY FOR 28 DAYS ON AND 14 DAYS OFF)
     Dates: start: 20170331, end: 20170502
  5. LISINOPRIL. [Concomitant]
     Active Substance: LISINOPRIL
     Indication: HYPERTENSION
     Dosage: UNK
  6. MIRALAX [Concomitant]
     Active Substance: POLYETHYLENE GLYCOL 3350
     Dosage: UNK, AS NEEDED (PRN)
  7. CARDURA [Concomitant]
     Active Substance: DOXAZOSIN MESYLATE
     Dosage: UNK
  8. BOOST [Suspect]
     Active Substance: DIETARY SUPPLEMENT
     Dosage: UNK
  9. SUTENT [Suspect]
     Active Substance: SUNITINIB MALATE
     Dosage: 37.5 MG, CYCLIC (28 DAYS ON AND 14 DAYS OFF)
     Dates: start: 20170611, end: 20170708

REACTIONS (34)
  - Weight decreased [Recovering/Resolving]
  - Platelet count decreased [Not Recovered/Not Resolved]
  - Red blood cell count decreased [Not Recovered/Not Resolved]
  - Stomatitis [Unknown]
  - Dysgeusia [Not Recovered/Not Resolved]
  - Drug hypersensitivity [Unknown]
  - Nasopharyngitis [Unknown]
  - Skin ulcer [Unknown]
  - Inappropriate schedule of drug administration [Unknown]
  - Blood pressure diastolic decreased [Unknown]
  - Oral pain [Recovering/Resolving]
  - Tongue discomfort [Not Recovered/Not Resolved]
  - Nausea [Unknown]
  - Fall [Unknown]
  - Diarrhoea [Recovered/Resolved]
  - Glossodynia [Unknown]
  - Dehydration [Unknown]
  - White blood cell count decreased [Not Recovered/Not Resolved]
  - Irritability [Unknown]
  - Lip pain [Unknown]
  - Hypotension [Not Recovered/Not Resolved]
  - Fatigue [Not Recovered/Not Resolved]
  - Cough [Not Recovered/Not Resolved]
  - Nasal congestion [Unknown]
  - Cholelithiasis [Recovering/Resolving]
  - Atypical pneumonia [Unknown]
  - Extra dose administered [Unknown]
  - Condition aggravated [Recovering/Resolving]
  - Yellow skin [Unknown]
  - Insomnia [Unknown]
  - Fungal infection [Unknown]
  - Bone marrow disorder [Unknown]
  - Feeling abnormal [Unknown]
  - Sneezing [Unknown]

NARRATIVE: CASE EVENT DATE: 2017
